FAERS Safety Report 24449732 (Version 1)
Quarter: 2024Q4

REPORT INFORMATION
  Report Type: Report from Study
  Country: IN (occurrence: IN)
  Receive Date: 20241017
  Receipt Date: 20241017
  Transmission Date: 20250114
  Serious: Yes (Death)
  Sender: ROCHE
  Company Number: IN-ROCHE-10000105266

PATIENT

DRUGS (3)
  1. MYCOPHENOLATE MOFETIL [Suspect]
     Active Substance: MYCOPHENOLATE MOFETIL
     Indication: Prophylaxis against transplant rejection
     Route: 065
  2. TACROLIMUS [Suspect]
     Active Substance: TACROLIMUS
     Indication: Prophylaxis against transplant rejection
     Route: 065
  3. PREDNISOLONE [Suspect]
     Active Substance: PREDNISOLONE
     Indication: Prophylaxis against transplant rejection
     Route: 065

REACTIONS (6)
  - Neuroendocrine carcinoma metastatic [Fatal]
  - Fungal sepsis [Fatal]
  - Tuberculosis [Fatal]
  - Lip and/or oral cavity cancer [Fatal]
  - COVID-19 pneumonia [Fatal]
  - Post transplant lymphoproliferative disorder [Fatal]
